FAERS Safety Report 10094478 (Version 1)
Quarter: 2014Q2

REPORT INFORMATION
  Report Type: Spontaneous
  Country: ES (occurrence: ES)
  Receive Date: 20140422
  Receipt Date: 20140422
  Transmission Date: 20141212
  Serious: Yes (Other)
  Sender: FDA-Public Use
  Company Number: ES-PFIZER INC-2014107744

PATIENT
  Age: 69 Year
  Sex: Male
  Weight: 59 kg

DRUGS (10)
  1. CRIZOTINIB [Suspect]
     Indication: LUNG ADENOCARCINOMA RECURRENT
     Dosage: 250 MG, 2X/DAY
     Route: 048
     Dates: start: 201304
  2. CRIZOTINIB [Suspect]
     Dosage: 200 MG, 2X/DAY
     Route: 048
  3. CRIZOTINIB [Suspect]
     Dosage: 200 MG, 1X/DAY
     Route: 048
  4. RAMIPRIL [Concomitant]
     Dosage: UNK
  5. TRAMADOL/ACETAMINOPHEN [Concomitant]
     Dosage: UNK
  6. ESCITALOPRAM [Concomitant]
     Dosage: UNK
  7. PANTOPRAZOL [Concomitant]
     Dosage: UNK
  8. LORAZEPAM [Concomitant]
     Dosage: UNK
  9. ALFUZOSIN [Concomitant]
     Dosage: UNK
  10. FUROSEMIDE [Concomitant]
     Indication: HYPERTENSION
     Dosage: 20 MG, DAILY

REACTIONS (1)
  - Renal impairment [Recovering/Resolving]
